FAERS Safety Report 7218228-4 (Version None)
Quarter: 2011Q1

REPORT INFORMATION
  Report Type: 
  Country: None (occurrence: None)
  Receive Date: 20110110
  Receipt Date: 20110106
  Transmission Date: 20110831
  Serious: Yes (Death)
  Sender: FDA-Public Use
  Company Number: IE-AMGEN-IRLSP2011000868

PATIENT

DRUGS (11)
  1. MOVICOL                            /01053601/ [Concomitant]
  2. ALPRAZOLAM [Concomitant]
  3. ACTIQ [Concomitant]
  4. LYRICA [Concomitant]
  5. ARANESP [Suspect]
     Indication: ANAEMIA OF MALIGNANT DISEASE
     Dosage: 500 A?G, 3 TIMES/WK
     Route: 058
     Dates: start: 20100329
  6. MST                                /00036302/ [Concomitant]
  7. SEVREDOL [Concomitant]
  8. DUPHALAC [Concomitant]
  9. STEMETIL                           /00013301/ [Concomitant]
  10. ZIMOVANE [Concomitant]
  11. LANSOPRAZOLE [Concomitant]

REACTIONS (1)
  - DEATH [None]
